FAERS Safety Report 17016497 (Version 2)
Quarter: 2019Q4

REPORT INFORMATION
  Report Type: Spontaneous
  Country: US (occurrence: US)
  Receive Date: 20191111
  Receipt Date: 20191113
  Transmission Date: 20200122
  Serious: No
  Sender: FDA-Public Use
  Company Number: US-PFIZER INC-2019485766

PATIENT
  Age: 70 Year
  Sex: Female
  Weight: 48.73 kg

DRUGS (3)
  1. IBRANCE [Suspect]
     Active Substance: PALBOCICLIB
     Indication: BREAST CANCER
     Dosage: 125 MG, CYCLIC(DAILY FOR 21 DAYS ON, 7 OFF)
     Route: 048
     Dates: start: 201910
  2. IBRANCE [Suspect]
     Active Substance: PALBOCICLIB
     Dosage: 100 MG, CYCLIC(DAILY FOR 21 DAYS ON, 7 OFF)
     Route: 048
  3. COMPAZINE [PROCHLORPERAZINE EDISYLATE] [Concomitant]
     Active Substance: PROCHLORPERAZINE EDISYLATE
     Dosage: 10 MG, UNK

REACTIONS (3)
  - Decreased appetite [Unknown]
  - Blood count abnormal [Unknown]
  - Eating disorder [Unknown]
